FAERS Safety Report 20004635 (Version 1)
Quarter: 2021Q4

REPORT INFORMATION
  Report Type: Spontaneous
  Country: US (occurrence: US)
  Receive Date: 20211027
  Receipt Date: 20211027
  Transmission Date: 20220303
  Serious: Yes (Hospitalization)
  Sender: FDA-Public Use
  Company Number: US-AMGEN-USASP2021163766

PATIENT
  Age: 78 Year
  Sex: Female

DRUGS (1)
  1. RITUXIMAB [Suspect]
     Active Substance: RITUXIMAB
     Indication: Non-Hodgkin^s lymphoma
     Dosage: UNK UNK, Q2WK
     Route: 065

REACTIONS (4)
  - SARS-CoV-2 test positive [Unknown]
  - Lung opacity [Unknown]
  - Cough [Unknown]
  - Drug interaction [Unknown]
